FAERS Safety Report 6003107-0 (Version None)
Quarter: 2008Q4

REPORT INFORMATION
  Report Type: 
  Country: None (occurrence: None)
  Receive Date: 20081215
  Receipt Date: 20081215
  Transmission Date: 20090506
  Serious: Yes (Hospitalization)
  Sender: FDA-Public Use
  Company Number: None

PATIENT
  Sex: Male
  Weight: 149 kg

DRUGS (16)
  1. GEMCITABINE [Suspect]
     Indication: NON-SMALL CELL LUNG CANCER STAGE IV
     Dosage: 400 MG/M2
     Dates: start: 20081114
  2. GEMCITABINE [Suspect]
     Indication: NON-SMALL CELL LUNG CANCER STAGE IV
     Dosage: 400 MG/M2
     Dates: start: 20081128
  3. PEMETREXED [Suspect]
     Indication: NON-SMALL CELL LUNG CANCER STAGE IV
     Dosage: 1200 MG/M2
     Dates: start: 20081114
  4. PEMETREXED [Suspect]
     Indication: NON-SMALL CELL LUNG CANCER STAGE IV
     Dosage: 1200 MG/M2
     Dates: start: 20081128
  5. BEVACIZUMAB [Suspect]
     Indication: NON-SMALL CELL LUNG CANCER STAGE IV
     Dosage: 10 MG/KG
     Dates: start: 20081114
  6. BEVACIZUMAB [Suspect]
     Indication: NON-SMALL CELL LUNG CANCER STAGE IV
     Dosage: 10 MG/KG
     Dates: start: 20081128
  7. FOLIC ACID [Concomitant]
  8. NORVASC [Concomitant]
  9. GLUCOTROL [Concomitant]
  10. LISINOPRIL [Concomitant]
  11. M.V.I. [Concomitant]
  12. SIMVASTATIN [Concomitant]
  13. ASPIRIN [Concomitant]
  14. K DUR [Concomitant]
  15. COMBIVENT [Concomitant]
  16. XANAX [Concomitant]

REACTIONS (1)
  - PNEUMONIA [None]
